FAERS Safety Report 7599140-8 (Version None)
Quarter: 2011Q3

REPORT INFORMATION
  Report Type: 
  Country: None (occurrence: None)
  Receive Date: 20110711
  Receipt Date: 20110629
  Transmission Date: 20111222
  Serious: Yes (Death, Hospitalization)
  Sender: FDA-Public Use
  Company Number: ZA-BAYER-2011-051402

PATIENT
  Age: 58 Year
  Sex: Female

DRUGS (2)
  1. KETEK [Concomitant]
     Indication: BRONCHOPNEUMONIA
     Dosage: DAILY DOSE 800 MG
     Dates: end: 20110529
  2. MOXIFLOXACIN [Suspect]
     Indication: PNEUMONIA
     Dosage: 400 MG, UNK
     Route: 048
     Dates: start: 20110529

REACTIONS (2)
  - VENTRICULAR FIBRILLATION [None]
  - CONVULSION [None]
